FAERS Safety Report 5888890-7 (Version None)
Quarter: 2008Q3

REPORT INFORMATION
  Report Type: 
  Country: None (occurrence: None)
  Receive Date: 20080919
  Receipt Date: 20080912
  Transmission Date: 20090109
  Serious: Yes (Death)
  Sender: FDA-Public Use
  Company Number: PHHY2008GB21570

PATIENT

DRUGS (16)
  1. CYCLOSPORINE [Suspect]
  2. AMBISOME [Suspect]
     Indication: PNEUMONIA
     Dosage: 50 MG
     Route: 042
     Dates: start: 20070803, end: 20070806
  3. AMBISOME [Suspect]
     Indication: FUNGAL INFECTION
     Dosage: 75 MG,
     Route: 042
     Dates: start: 20070807, end: 20070810
  4. AMBISOME [Suspect]
     Dosage: 100 MG, UNK
     Route: 042
     Dates: start: 20070811, end: 20070814
  5. AMBISOME [Suspect]
     Dosage: 50 MG, UNK
     Route: 042
     Dates: start: 20070817, end: 20070819
  6. AMBISOME [Suspect]
     Dosage: 50 MG, UNK
     Route: 042
     Dates: start: 20070824, end: 20070901
  7. ITRIZOLE [Concomitant]
     Dosage: UNK
     Route: 048
     Dates: end: 20070723
  8. MEROPEN [Concomitant]
     Dosage: 1.5 G,
     Route: 042
     Dates: end: 20080806
  9. ACYCLOVIR [Concomitant]
     Dosage: 250 MG, UNK
     Route: 042
     Dates: start: 20070828
  10. POTASSIUM CHLORIDE [Concomitant]
     Route: 042
  11. MAGNESIUM SULFATE [Concomitant]
     Route: 042
  12. VFEND [Concomitant]
     Dosage: 400 MG
     Route: 042
     Dates: start: 20070723, end: 20070802
  13. VFEND [Concomitant]
     Dosage: 200 MG
     Route: 042
     Dates: start: 20070803, end: 20070803
  14. METHOTREXATE [Concomitant]
     Dosage: 10 MG
     Route: 042
     Dates: start: 20070803, end: 20070803
  15. FUNGUARD [Concomitant]
     Dosage: 100 MG
     Route: 042
     Dates: start: 20070821, end: 20070823
  16. ELASPOL [Concomitant]
     Dosage: 300 MG
     Route: 042
     Dates: start: 20070825

REACTIONS (5)
  - ANAEMIA [None]
  - HYPOKALAEMIA [None]
  - PULMONARY ALVEOLAR HAEMORRHAGE [None]
  - RENAL IMPAIRMENT [None]
  - TRANSFUSION [None]
